FAERS Safety Report 20760259 (Version 1)
Quarter: 2022Q2

REPORT INFORMATION
  Report Type: Spontaneous
  Country: US (occurrence: US)
  Receive Date: 20220428
  Receipt Date: 20220428
  Transmission Date: 20220720
  Serious: No
  Sender: FDA-Public Use
  Company Number: US-ENDO PHARMACEUTICALS INC-2022-000807

PATIENT
  Sex: Female

DRUGS (1)
  1. QWO [Suspect]
     Active Substance: COLLAGENASE CLOSTRIDIUM HISTOLYTICUM-AAES
     Indication: Cellulite
     Dosage: UNK, UNKNOWN (TREATMENT ONE) 12 DIMPLES PER BUTTOCK, 24 DIMPLES TOTAL
     Route: 065

REACTIONS (3)
  - Pain in extremity [Unknown]
  - Contusion [Unknown]
  - Off label use [Not Recovered/Not Resolved]
